FAERS Safety Report 4807883-1 (Version None)
Quarter: 2005Q4

REPORT INFORMATION
  Report Type: 
  Country: None (occurrence: None)
  Receive Date: 20051020
  Receipt Date: 20051012
  Transmission Date: 20060501
  Serious: Yes (Death)
  Sender: FDA-Public Use
  Company Number: CA201-05-0424

PATIENT
  Age: 63 Year
  Sex: Female

DRUGS (2)
  1. CAPXOL (PACLITAXEL ALBUMIN NANOPARTICLE FOR INJECTABLE SUSPENSION) (IN [Suspect]
     Indication: BREAST CANCER METASTATIC
     Dosage: 3 DOSES, DISCONTINUED 11-OCT-2005(428MG), INTRAVENOUS DRIP
     Route: 041
     Dates: start: 20050830
  2. METFORMIN HCL [Concomitant]

REACTIONS (8)
  - ALANINE AMINOTRANSFERASE INCREASED [None]
  - APNOEA [None]
  - BLOOD GLUCOSE INCREASED [None]
  - BLOOD TRIGLYCERIDES INCREASED [None]
  - CARDIAC ARREST [None]
  - PCO2 DECREASED [None]
  - SUDDEN DEATH [None]
  - TRACHEAL HAEMORRHAGE [None]
